FAERS Safety Report 4820613-2 (Version None)
Quarter: 2005Q4

REPORT INFORMATION
  Report Type: 
  Country: None (occurrence: None)
  Receive Date: 20051104
  Receipt Date: 20051031
  Transmission Date: 20060501
  Serious: Yes (Disabling)
  Sender: FDA-Public Use
  Company Number: US-GLAXOSMITHKLINE-A0580374A

PATIENT
  Age: 28 Year
  Sex: Female

DRUGS (2)
  1. PAXIL [Suspect]
     Indication: PANIC DISORDER
     Route: 048
     Dates: start: 20000701
  2. PAXIL CR [Suspect]
     Indication: PANIC DISORDER
     Route: 048
     Dates: start: 20000101

REACTIONS (19)
  - AGGRESSION [None]
  - ANGER [None]
  - BLINDNESS [None]
  - BRAIN DAMAGE [None]
  - CRYING [None]
  - DEMENTIA [None]
  - DRUG WITHDRAWAL SYNDROME [None]
  - LACERATION [None]
  - MUSCLE SPASMS [None]
  - MUSCLE TWITCHING [None]
  - PARAESTHESIA [None]
  - PERSONALITY CHANGE [None]
  - PHYSICAL ABUSE [None]
  - RETINAL HAEMORRHAGE [None]
  - SELF MUTILATION [None]
  - SUICIDE ATTEMPT [None]
  - TENDON RUPTURE [None]
  - TIC [None]
  - VERBAL ABUSE [None]
